FAERS Safety Report 9818278 (Version 2)
Quarter: 2014Q1

REPORT INFORMATION
  Report Type: Spontaneous
  Country: JP (occurrence: JP)
  Receive Date: 20140115
  Receipt Date: 20140115
  Transmission Date: 20141002
  Serious: Yes (Hospitalization, Other)
  Sender: FDA-Public Use
  Company Number: JP-PFIZER INC-2014006453

PATIENT
  Age: 89 Year
  Sex: Female

DRUGS (2)
  1. SPIRONOLACTONE [Suspect]
     Indication: CARDIAC FAILURE CHRONIC
     Dosage: UNK
  2. FUROSEMIDE [Suspect]
     Indication: CARDIAC FAILURE CHRONIC

REACTIONS (2)
  - Hyponatraemia [Recovered/Resolved]
  - Delirium [Recovered/Resolved]
